FAERS Safety Report 6333669-5 (Version None)
Quarter: 2009Q3

REPORT INFORMATION
  Report Type: 
  Country: None (occurrence: None)
  Receive Date: 20090829
  Receipt Date: 20090518
  Transmission Date: 20100115
  Serious: No
  Sender: FDA-Public Use
  Company Number: US-ABBOTT-09P-163-0574239-00

PATIENT
  Sex: Female
  Weight: 95.34 kg

DRUGS (4)
  1. SIMCOR [Suspect]
     Indication: BLOOD TRIGLYCERIDES INCREASED
     Dosage: 500/20 MG TAKEN AT NIGHT
     Route: 048
     Dates: start: 20090506
  2. ASPIRIN [Concomitant]
     Indication: DRUG USE FOR UNKNOWN INDICATION
     Route: 048
  3. OVER-THE-COUNTER MEDICINE [Concomitant]
     Indication: MENOPAUSAL SYMPTOMS
     Route: 048
  4. OVER-THE-COUNTER MEDICINE [Concomitant]
     Indication: HOT FLUSH

REACTIONS (1)
  - NIGHTMARE [None]
